FAERS Safety Report 7223550-1 (Version None)
Quarter: 2011Q1

REPORT INFORMATION
  Report Type: 
  Country: None (occurrence: None)
  Receive Date: 20110112
  Receipt Date: 20100720
  Transmission Date: 20110831
  Serious: No
  Sender: FDA-Public Use
  Company Number: US-ALLERGAN-1009104US

PATIENT
  Sex: Female

DRUGS (3)
  1. ARTIFICIAL TEARS [Concomitant]
     Indication: DRY EYE
  2. RESTASIS [Suspect]
     Indication: DRY EYE
     Dosage: 1 GTT, Q12H
     Route: 047
  3. RESTASIS [Suspect]
     Dosage: 1 GTT, Q12H
     Route: 047

REACTIONS (2)
  - CONJUNCTIVITIS [None]
  - FOREIGN BODY SENSATION IN EYES [None]
